FAERS Safety Report 7514039-0 (Version None)
Quarter: 2011Q2

REPORT INFORMATION
  Report Type: 
  Country: None (occurrence: None)
  Receive Date: 20110531
  Receipt Date: 20110518
  Transmission Date: 20111010
  Serious: Yes (Hospitalization, Other)
  Sender: FDA-Public Use
  Company Number: SE-UCBSA-033078

PATIENT
  Sex: Female

DRUGS (6)
  1. LAMOTRIGINE [Concomitant]
  2. KEPPRA [Suspect]
     Indication: EPILEPSY
     Route: 048
  3. BISOPROLOL FUMARATE [Suspect]
  4. TRILEPTAL [Suspect]
     Indication: EPILEPSY
     Route: 048
  5. ARICEPT [Concomitant]
  6. BISOPROLOL FUMARATE [Suspect]
     Dosage: DOSE REDUCED

REACTIONS (4)
  - ORTHOSTATIC HYPOTENSION [None]
  - THROMBOCYTOPENIA [None]
  - PETIT MAL EPILEPSY [None]
  - NORMOCHROMIC NORMOCYTIC ANAEMIA [None]
